FAERS Safety Report 5741121-0 (Version None)
Quarter: 2008Q2

REPORT INFORMATION
  Report Type: 
  Country: None (occurrence: None)
  Receive Date: 20080514
  Receipt Date: 20080506
  Transmission Date: 20081010
  Serious: Yes (Other)
  Sender: FDA-Public Use
  Company Number: 2008006576

PATIENT
  Age: 69 Year
  Sex: Male
  Weight: 90.7194 kg

DRUGS (4)
  1. ZYRTEC [Suspect]
     Indication: HYPERSENSITIVITY
     Dosage: 1 TABLET DAILY (1 IN 1 D), ORAL
     Route: 048
     Dates: start: 20080314, end: 20080316
  2. CITALOPRAM HYDROBROMIDE [Concomitant]
  3. NORVASC [Concomitant]
  4. LISINOPRIL [Concomitant]

REACTIONS (1)
  - EPISTAXIS [None]
